FAERS Safety Report 5507297-5 (Version None)
Quarter: 2007Q4

REPORT INFORMATION
  Report Type: 
  Country: None (occurrence: None)
  Receive Date: 20071025
  Receipt Date: 20071010
  Transmission Date: 20080405
  Serious: Yes (Hospitalization, Other)
  Sender: FDA-Public Use
  Company Number: THYM-11535

PATIENT
  Age: 44 Year
  Sex: Male
  Weight: 76 kg

DRUGS (6)
  1. THYMOGLOBULIN [Suspect]
     Indication: KIDNEY TRANSPLANT REJECTION
     Dates: start: 20070312, end: 20070318
  2. THYMOGLOBULIN [Suspect]
     Indication: KIDNEY TRANSPLANT REJECTION
     Dates: start: 20070824, end: 20070831
  3. CELLCEPT. MFR: ROCHE [Concomitant]
  4. PROGRAF [Concomitant]
  5. CORTANCYL. MFR: ROUSSEL CORPORATION [Concomitant]
  6. AZANTAC. MFR: GLAXO LABORATORIES LIMITED [Concomitant]

REACTIONS (2)
  - KIDNEY TRANSPLANT REJECTION [None]
  - SERUM SICKNESS [None]
